FAERS Safety Report 20149731 (Version 1)
Quarter: 2021Q4

REPORT INFORMATION
  Report Type: Spontaneous
  Country: US (occurrence: US)
  Receive Date: 20211206
  Receipt Date: 20211206
  Transmission Date: 20220303
  Serious: Yes (Life-Threatening, Hospitalization)
  Sender: FDA-Public Use
  Company Number: US-JNJFOC-20211148161

PATIENT
  Age: 44 Year
  Sex: Female
  Weight: 59 kg

DRUGS (4)
  1. TYLENOL [Suspect]
     Active Substance: ACETAMINOPHEN
     Indication: Migraine
     Dosage: UNKNOWN DOSE
     Route: 048
     Dates: end: 20021023
  2. VICODIN [Suspect]
     Active Substance: ACETAMINOPHEN\HYDROCODONE BITARTRATE
     Indication: Migraine
     Dosage: (HYDROCODONE BITARTRATE 30 MG/ACETAMINOPHEN 3000 MG)/ DAY FOR 2 MONTHS
     Route: 048
     Dates: end: 20021027
  3. IMITREX [Concomitant]
     Active Substance: SUMATRIPTAN SUCCINATE
     Indication: Product used for unknown indication
     Route: 065
     Dates: end: 20021023
  4. HYDROCHLOROTHIAZIDE [Concomitant]
     Active Substance: HYDROCHLOROTHIAZIDE
     Indication: Product used for unknown indication
     Route: 065
     Dates: end: 20021023

REACTIONS (7)
  - Chest X-ray abnormal [Recovered/Resolved]
  - Accidental overdose [Recovered/Resolved]
  - Acute hepatic failure [Recovered/Resolved]
  - Acute kidney injury [Recovered/Resolved]
  - Respiratory failure [Recovered/Resolved]
  - Product administration error [Recovered/Resolved]
  - Hepatitis C RNA [Not Recovered/Not Resolved]

NARRATIVE: CASE EVENT DATE: 20021028
